FAERS Safety Report 6221954-7 (Version None)
Quarter: 2009Q2

REPORT INFORMATION
  Report Type: 
  Country: None (occurrence: None)
  Receive Date: 20090608
  Receipt Date: 20090608
  Transmission Date: 20091009
  Serious: Yes (Hospitalization)
  Sender: FDA-Public Use
  Company Number: None

PATIENT
  Age: 65 Year
  Sex: Male

DRUGS (7)
  1. VELCADE [Suspect]
     Indication: HEAD AND NECK CANCER
     Dosage: 2.5MG 2X/WK IV PUSH
     Route: 042
     Dates: start: 20090112, end: 20090223
  2. CISPLATIN [Suspect]
     Dosage: 57MG 1X/WK IV PB
     Route: 042
     Dates: start: 20090112, end: 20090223
  3. CRESTOR [Concomitant]
  4. PROSCAR [Concomitant]
  5. SYNTHROID [Concomitant]
  6. EFFEXOR [Concomitant]
  7. VICODIN [Concomitant]

REACTIONS (3)
  - DEHYDRATION [None]
  - NAUSEA [None]
  - VOMITING [None]
